FAERS Safety Report 4638231-8 (Version None)
Quarter: 2005Q2

REPORT INFORMATION
  Report Type: 
  Country: None (occurrence: None)
  Receive Date: 20050418
  Receipt Date: 20050325
  Transmission Date: 20051028
  Serious: Yes (Other)
  Sender: FDA-Public Use
  Company Number: USA050289719

PATIENT
  Age: 57 Year
  Sex: Female
  Weight: 95 kg

DRUGS (10)
  1. FORTEO [Suspect]
     Indication: OSTEOPOROSIS
     Dosage: 20 UG DAY
     Dates: start: 20040116
  2. ADVAIR DISKUS 100/50 [Concomitant]
  3. AVINZA [Concomitant]
  4. LORCET-HD [Concomitant]
  5. K-DUR 10 [Concomitant]
  6. CARAFATE [Concomitant]
  7. PREVACID [Concomitant]
  8. KLONOPIN [Concomitant]
  9. XANAX (ALPRAZOLAM DUM) [Concomitant]
  10. SEROQUEL [Concomitant]

REACTIONS (4)
  - BONE DENSITY DECREASED [None]
  - BONE MARROW DISORDER [None]
  - INFARCTION [None]
  - MENISCUS LESION [None]
